FAERS Safety Report 8589258 (Version 3)
Quarter: 2013Q1

REPORT INFORMATION
  Report Type: Spontaneous
  Country: US (occurrence: US)
  Receive Date: 20120531
  Receipt Date: 20130211
  Transmission Date: 20140127
  Serious: No
  Sender: FDA-Public Use
  Company Number: US-ASTRAZENECA-2012SE31874

PATIENT
  Age: 69 Year
  Sex: Female

DRUGS (1)
  1. SYMBICORT PMDI [Suspect]
     Indication: CHRONIC OBSTRUCTIVE PULMONARY DISEASE
     Dosage: UNKNOWN FREQUENCY
     Route: 055

REACTIONS (5)
  - Adverse event [Unknown]
  - Influenza [Unknown]
  - Weight increased [Unknown]
  - Malaise [Unknown]
  - Sleep disorder [Unknown]
